FAERS Safety Report 7867462-9 (Version None)
Quarter: 2011Q4

REPORT INFORMATION
  Report Type: 
  Country: None (occurrence: None)
  Receive Date: 20111028
  Receipt Date: 20111018
  Transmission Date: 20120403
  Serious: Yes (Hospitalization, Other)
  Sender: FDA-Public Use
  Company Number: US-BAYER-2011-031578

PATIENT
  Age: 44 Year
  Sex: Female

DRUGS (1)
  1. YASMIN [Suspect]
     Dosage: UNK
     Dates: start: 20060101, end: 20080401

REACTIONS (6)
  - PULMONARY EMBOLISM [None]
  - DEEP VEIN THROMBOSIS [None]
  - THROMBOSIS [None]
  - PAIN [None]
  - INJURY [None]
  - PULMONARY THROMBOSIS [None]
